FAERS Safety Report 7203828-8 (Version None)
Quarter: 2010Q4

REPORT INFORMATION
  Report Type: 
  Country: None (occurrence: None)
  Receive Date: 20101230
  Receipt Date: 20101227
  Transmission Date: 20110411
  Serious: Yes (Hospitalization)
  Sender: FDA-Public Use
  Company Number: US-AMGEN-USASP2010011871

PATIENT

DRUGS (7)
  1. PROLIA [Suspect]
     Indication: OSTEOPOROSIS POSTMENOPAUSAL
     Dates: start: 20100618, end: 20100901
  2. PROZAC                             /00724401/ [Concomitant]
  3. PRILOSEC [Concomitant]
  4. ZOCOR [Concomitant]
  5. LEVOTHYROXINE [Concomitant]
  6. LISINOPRIL [Concomitant]
  7. PROMETHAZINE [Concomitant]

REACTIONS (1)
  - STAPHYLOCOCCAL OSTEOMYELITIS [None]
